FAERS Safety Report 4691142-4 (Version None)
Quarter: 2005Q2

REPORT INFORMATION
  Report Type: 
  Country: None (occurrence: None)
  Receive Date: 20050610
  Receipt Date: 20050531
  Transmission Date: 20051028
  Serious: Yes (Hospitalization)
  Sender: FDA-Public Use
  Company Number: 8009672

PATIENT
  Age: 66 Year
  Sex: Male

DRUGS (5)
  1. KEPPRA [Suspect]
     Indication: EPILEPSY
     Dosage: 500 MG 3/D PO
     Route: 048
     Dates: start: 20041001
  2. CARBAMAZEPINE [Concomitant]
  3. PHENYTOIN [Concomitant]
  4. TOPIRAMATE [Concomitant]
  5. ASPIRIN [Concomitant]

REACTIONS (1)
  - ERYTHEMA MULTIFORME [None]
